FAERS Safety Report 9897297 (Version 1)
Quarter: 2014Q1

REPORT INFORMATION
  Report Type: Report from Study
  Country: US (occurrence: US)
  Receive Date: 20140214
  Receipt Date: 20140214
  Transmission Date: 20141002
  Serious: Yes (Death)
  Sender: FDA-Public Use
  Company Number: US-ROCHE-1327586

PATIENT
  Age: 88 Year
  Sex: Female
  Weight: 64.55 kg

DRUGS (3)
  1. AVASTIN [Suspect]
     Indication: UTERINE CANCER
     Route: 042
     Dates: start: 20121105
  2. FAMOTIDINE [Concomitant]
     Route: 048
  3. IXABEPILONE [Concomitant]
     Dosage: 27 MG
     Route: 042

REACTIONS (3)
  - Death [Fatal]
  - Off label use [Unknown]
  - Proteinuria [Unknown]
